FAERS Safety Report 4732448-X (Version None)
Quarter: 2005Q3

REPORT INFORMATION
  Report Type: 
  Country: None (occurrence: None)
  Receive Date: 20050801
  Receipt Date: 20050723
  Transmission Date: 20060218
  Serious: Yes (Hospitalization)
  Sender: FDA-Public Use
  Company Number: 2005-07-0413

PATIENT
  Age: 51 Year
  Sex: Male
  Weight: 89 kg

DRUGS (12)
  1. PROCRIT [Suspect]
     Indication: ANAEMIA
     Dosage: SEE IMAGE
     Route: 058
     Dates: start: 20031010, end: 20040226
  2. PROCRIT [Suspect]
     Indication: ANAEMIA
     Dosage: SEE IMAGE
     Route: 058
     Dates: start: 20031010, end: 20040423
  3. PROCRIT [Suspect]
     Indication: ANAEMIA
     Dosage: SEE IMAGE
     Route: 058
     Dates: start: 20040226, end: 20040423
  4. COPEGUS [Suspect]
     Indication: HEPATITIS C
     Dosage: 1200 MG ORAL
     Route: 048
     Dates: start: 20031010, end: 20040212
  5. PEGASYS [Suspect]
     Indication: HEPATITIS C
     Dosage: SEE IMAGE
     Dates: start: 20031010, end: 20040226
  6. PEGASYS [Suspect]
     Indication: HEPATITIS C
     Dosage: SEE IMAGE
     Dates: start: 20040212, end: 20040226
  7. VIAGRA [Suspect]
  8. PROCARDIA ORALS [Concomitant]
  9. REGLAN 1 PRN [Concomitant]
  10. CELEXA (CILTALOPRAM) [Concomitant]
  11. CITRUCEL [Concomitant]
  12. HYDROCHLOROTHIAZIDE [Concomitant]

REACTIONS (8)
  - ANTI-ERYTHROPOIETIN ANTIBODY POSITIVE [None]
  - APLASIA PURE RED CELL [None]
  - FATIGUE [None]
  - INJECTION SITE SWELLING [None]
  - PARVOVIRUS B19 SEROLOGY POSITIVE [None]
  - PLATELET COUNT DECREASED [None]
  - SYNCOPE [None]
  - WHITE BLOOD CELL COUNT DECREASED [None]
